FAERS Safety Report 17236355 (Version 1)
Quarter: 2020Q1

REPORT INFORMATION
  Report Type: Spontaneous
  Country: FR (occurrence: FR)
  Receive Date: 20200106
  Receipt Date: 20200106
  Transmission Date: 20200409
  Serious: Yes (Other)
  Sender: FDA-Public Use
  Company Number: FR-PFIZER INC-2020001354

PATIENT
  Sex: Female

DRUGS (18)
  1. LEVETIRACETAM. [Suspect]
     Active Substance: LEVETIRACETAM
     Dosage: UNK, 2X/DAY (2 WITH UNKNOWN DOSE UNITS 2 TIMES DAILY)
     Dates: start: 20110105, end: 20110202
  2. LEVETIRACETAM. [Suspect]
     Active Substance: LEVETIRACETAM
     Dosage: 1 IN THE MORNING AND 2 IN THE EVENING THEN 1 IN THE MORNING AND IN THE EVENING
     Dates: start: 20110202, end: 20110301
  3. URBANYL [Suspect]
     Active Substance: CLOBAZAM
     Dosage: UNK, DAILY(1 IN THE EVENING)
     Dates: start: 20110301, end: 20110526
  4. ASPEGIC [ACETYLSALICYLATE LYSINE] [Suspect]
     Active Substance: ASPIRIN DL-LYSINE
     Dosage: UNK, DAILY(1 AT LUNCH)
     Dates: start: 20110202, end: 20110301
  5. DEPAKINE CHRONO [Suspect]
     Active Substance: VALPROATE SODIUM
     Dosage: 1 ,5 TABLETS IN THE MORNING AND 2 IN THE EVENING DURING 5 DAYS ; 1,5 TABLETS IN THE MORNING AND 1..
     Dates: start: 20110105, end: 20110202
  6. LEVETIRACETAM. [Suspect]
     Active Substance: LEVETIRACETAM
     Dosage: AT 3 IN THE MORNING AND IN THE EVENING
     Dates: start: 20110526, end: 20110802
  7. ASPEGIC [ACETYLSALICYLATE LYSINE] [Suspect]
     Active Substance: ASPIRIN DL-LYSINE
     Dosage: UNK, DAILY(1 PER DAY)
     Dates: start: 20110526, end: 20110802
  8. DEPAKINE CHRONO [Suspect]
     Active Substance: VALPROATE SODIUM
     Dosage: UNK
     Dates: start: 201012, end: 20110802
  9. SPECIAFOLDINE [Concomitant]
     Active Substance: FOLIC ACID
     Dosage: 1 IN THE MORNING AND IN THE EVENING
     Dates: start: 20110202, end: 20110301
  10. LEVETIRACETAM. [Suspect]
     Active Substance: LEVETIRACETAM
     Dosage: 3 IN THE MORNING AND IN THE EVENING
     Dates: start: 20110301, end: 20110526
  11. DEPAKINE CHRONO [Suspect]
     Active Substance: VALPROATE SODIUM
     Dosage: PROGRESSIVE DIMINUTION
     Dates: start: 20110202, end: 20110301
  12. DEPAKINE CHRONO [Suspect]
     Active Substance: VALPROATE SODIUM
     Dosage: UNK, DAILY(1 IN THE EVENING)
     Dates: start: 20110301, end: 20110526
  13. URBANYL [Suspect]
     Active Substance: CLOBAZAM
     Dosage: UNK, DAILY(1 IN THE MORNING AND 0.5 IN THE EVENING)
     Dates: start: 20110526, end: 20110802
  14. URBANYL [Suspect]
     Active Substance: CLOBAZAM
     Dosage: UNK, DAILY(1 IN THE MORNING)
     Dates: start: 20110105, end: 20110202
  15. SPECIAFOLDINE [Concomitant]
     Active Substance: FOLIC ACID
     Dosage: 5 MG, 1X/DAY
     Dates: start: 20110526, end: 20110802
  16. ASPEGIC [ACETYLSALICYLATE LYSINE] [Suspect]
     Active Substance: ASPIRIN DL-LYSINE
     Dosage: UNK, DAILY(1 PER DAY)
     Dates: start: 20110301, end: 20110526
  17. URBANYL [Suspect]
     Active Substance: CLOBAZAM
     Dosage: UNK, DAILY(1 IN THE MORNING AND 0.5 IN THE EVENING)
     Dates: start: 20110202, end: 20110301
  18. SPECIAFOLDINE [Concomitant]
     Active Substance: FOLIC ACID
     Dosage: 2 IN THE MORNING AND IN THE EVENING
     Dates: start: 20110105, end: 20110202

REACTIONS (4)
  - Loss of consciousness [Unknown]
  - Uterine contractions during pregnancy [Unknown]
  - Metrorrhagia [Unknown]
  - Maternal exposure timing unspecified [Unknown]
